FAERS Safety Report 5039909-7 (Version None)
Quarter: 2006Q2

REPORT INFORMATION
  Report Type: 
  Country: None (occurrence: None)
  Receive Date: 20060601
  Receipt Date: 20060306
  Transmission Date: 20061013
  Serious: No
  Sender: FDA-Public Use
  Company Number: 2005PV004373

PATIENT
  Age: 40 Year
  Sex: Male
  Weight: 122.4712 kg

DRUGS (6)
  1. BYETTA [Suspect]
     Indication: DIABETES MELLITUS NON-INSULIN-DEPENDENT
     Dosage: 5 MCG;BID;SC
     Route: 058
     Dates: start: 20051101
  2. BYETTA [Suspect]
  3. METFORMIN [Concomitant]
  4. AMARYL [Concomitant]
  5. ACTOS /USA/ [Concomitant]
  6. VITAMIN CAP [Concomitant]

REACTIONS (6)
  - BLOOD GLUCOSE INCREASED [None]
  - DIARRHOEA [None]
  - DYSPEPSIA [None]
  - GASTROOESOPHAGEAL REFLUX DISEASE [None]
  - NAUSEA [None]
  - WEIGHT DECREASED [None]
